FAERS Safety Report 5835453-5 (Version None)
Quarter: 2008Q3

REPORT INFORMATION
  Report Type: 
  Country: None (occurrence: None)
  Receive Date: 20080806
  Receipt Date: 20080805
  Transmission Date: 20090109
  Serious: Yes (Life-Threatening, Hospitalization)
  Sender: FDA-Public Use
  Company Number: NL-WYE-H02946608

PATIENT
  Sex: Male
  Weight: 77 kg

DRUGS (5)
  1. GEMTUZUMAB OZOGAMICIN [Suspect]
     Indication: ACUTE MYELOID LEUKAEMIA
     Dosage: 5.7 MG-FREQUENCY NOT PROVIDED (CUMULATIVE DOSE GIVEN 29.3MG)
     Route: 065
     Dates: start: 20060826, end: 20070117
  2. CEFTAZIDIME [Concomitant]
     Indication: PROPHYLAXIS
     Dosage: NOT PROVIDED
     Route: 065
     Dates: start: 20070127, end: 20070223
  3. ETOPOSIDE [Suspect]
     Indication: ACUTE MYELOID LEUKAEMIA
     Dosage: 190 MG X 3 DAYS-FREQUENCY NOT PROVIDED (CUMULATIVE DOSE=570MG)
     Route: 042
     Dates: start: 20061025, end: 20070120
  4. CYTARABINE [Suspect]
     Indication: ACUTE MYELOID LEUKAEMIA
     Dosage: 190 MG X 5 DAYS-FREQUENCY NOT PROVIDED (CUMULATIVE DOSE=950 MG)
     Route: 042
     Dates: start: 20061025, end: 20070122
  5. IDARUBICIN HCL [Suspect]
     Indication: ACUTE MYELOID LEUKAEMIA
     Dosage: 15 MG X 3 DAYS-FREQUENCY NOT PROVIDED (CUMULATIVE DOSE GIVEN 45.0 MG)
     Route: 042
     Dates: start: 20070118, end: 20070122

REACTIONS (4)
  - CAECITIS [None]
  - GASTROINTESTINAL HAEMORRHAGE [None]
  - RENAL FAILURE [None]
  - RESPIRATORY FAILURE [None]
